FAERS Safety Report 23934783 (Version 3)
Quarter: 2024Q4

REPORT INFORMATION
  Report Type: Report from Study
  Country: US (occurrence: US)
  Receive Date: 20240604
  Receipt Date: 20241018
  Transmission Date: 20250115
  Serious: Yes (Hospitalization, Other)
  Sender: ABBVIE
  Company Number: US-ABBVIE-5783656

PATIENT
  Sex: Male

DRUGS (1)
  1. IMBRUVICA [Suspect]
     Active Substance: IBRUTINIB
     Indication: Bone marrow transplant
     Dosage: 70MG/ML SUSPENSION (4.3ML DAILY)
     Route: 048
     Dates: start: 20240320

REACTIONS (9)
  - Haemostasis [Unknown]
  - Pneumonia [Unknown]
  - Bronchitis [Unknown]
  - Adenovirus infection [Unknown]
  - Rhinovirus infection [Unknown]
  - Respiratory syncytial virus infection [Unknown]
  - Septic shock [Unknown]
  - Cardiac arrest [Unknown]
  - Hypotension [Unknown]

NARRATIVE: CASE EVENT DATE: 20240101
